FAERS Safety Report 8203202-1 (Version None)
Quarter: 2012Q1

REPORT INFORMATION
  Report Type: 
  Country: None (occurrence: None)
  Receive Date: 20120312
  Receipt Date: 20120307
  Transmission Date: 20120608
  Serious: Yes (Life-Threatening, Hospitalization, Other)
  Sender: FDA-Public Use
  Company Number: US-ASTRAZENECA-2011SE34955

PATIENT
  Age: 18469 Day
  Sex: Female

DRUGS (7)
  1. SYNTHROID [Concomitant]
     Dates: start: 20051108
  2. SEROQUEL [Suspect]
     Route: 048
     Dates: start: 20100621, end: 20110531
  3. LITHIUM CARBONATE [Suspect]
     Indication: BIPOLAR DISORDER
     Route: 065
     Dates: start: 20050308, end: 20110615
  4. DEPAKOTE [Concomitant]
     Dates: start: 20110613
  5. SEROQUEL [Suspect]
     Indication: BIPOLAR DISORDER
     Dosage: 100 MG- 300 MG
     Route: 048
     Dates: start: 20000201, end: 20090101
  6. PROZAC [Concomitant]
     Dates: start: 20020808
  7. FLUOXETINE [Concomitant]
     Dates: start: 20030922

REACTIONS (5)
  - RASH [None]
  - SOMNOLENCE [None]
  - NERVOUSNESS [None]
  - VENTRICULAR TACHYCARDIA [None]
  - TREMOR [None]
